FAERS Safety Report 19638079 (Version 1)
Quarter: 2021Q3

REPORT INFORMATION
  Report Type: Spontaneous
  Country: US (occurrence: US)
  Receive Date: 20210729
  Receipt Date: 20210729
  Transmission Date: 20211014
  Serious: No
  Sender: FDA-Public Use
  Company Number: US-JACOBUS PHARMACEUTICAL COMPANY, INC.-2114433

PATIENT
  Age: 56 Year
  Sex: Female

DRUGS (6)
  1. VITAMIN D [Concomitant]
     Active Substance: VITAMIN D NOS
  2. BIOTIN [Concomitant]
     Active Substance: BIOTIN
  3. PYRIDOSTIGMINE BROMIDE. [Concomitant]
     Active Substance: PYRIDOSTIGMINE BROMIDE
  4. RUZURGI [Suspect]
     Active Substance: AMIFAMPRIDINE
     Indication: CONGENITAL MYASTHENIC SYNDROME
     Route: 048
     Dates: start: 20200525
  5. SUDAFED [Concomitant]
     Active Substance: PSEUDOEPHEDRINE HYDROCHLORIDE
  6. C?BI?EST/PROG [Concomitant]

REACTIONS (4)
  - Muscle spasms [Unknown]
  - Diarrhoea [Unknown]
  - Nausea [Unknown]
  - Abdominal distension [Unknown]
